FAERS Safety Report 14019250 (Version 1)
Quarter: 2017Q3

REPORT INFORMATION
  Report Type: Spontaneous
  Country: US (occurrence: US)
  Receive Date: 20170928
  Receipt Date: 20170928
  Transmission Date: 20171128
  Serious: No
  Sender: FDA-Public Use
  Company Number: US-BION-005939

PATIENT
  Age: 69 Year
  Sex: Female
  Weight: 52.16 kg

DRUGS (1)
  1. IMODIUM A-D [Suspect]
     Active Substance: LOPERAMIDE HYDROCHLORIDE
     Indication: INFLAMMATORY BOWEL DISEASE
     Dosage: TAKES TWO IMODIUM SOFT GELS AS NEEDED
     Route: 048

REACTIONS (1)
  - Incorrect drug administration duration [Not Recovered/Not Resolved]
